FAERS Safety Report 22827587 (Version 2)
Quarter: 2024Q3

REPORT INFORMATION
  Report Type: Report from Study
  Country: US (occurrence: US)
  Receive Date: 20230816
  Receipt Date: 20240730
  Transmission Date: 20241016
  Serious: Yes (Other)
  Sender: HRA PHARMA
  Company Number: US-ORG100014127-2023000893

PATIENT
  Age: 42 Year
  Sex: Female

DRUGS (15)
  1. LYSODREN [Suspect]
     Active Substance: MITOTANE
     Indication: Metastases to lung
     Dosage: 02 TABLET TWICE DAILY WITH FATTY FOOD.
     Route: 048
     Dates: start: 20230121
  2. LYSODREN [Suspect]
     Active Substance: MITOTANE
     Indication: Metastases to lung
     Dosage: 04 TABLET IN THE MORNING, 03 TABLETS IN THE EVENING WITH FATTY FOOD.
     Route: 048
     Dates: end: 2023
  3. LYSODREN [Suspect]
     Active Substance: MITOTANE
     Indication: Metastases to lung
     Dosage: ON DAY 1 AND 2
  4. LYSODREN [Suspect]
     Active Substance: MITOTANE
     Indication: Metastases to lung
     Dosage: ON DAY 3
  5. Acetaminophen Tab 500 mg [Concomitant]
     Indication: Product used for unknown indication
  6. Albuterol AER HFA [Concomitant]
     Indication: Product used for unknown indication
  7. Dexamethasone tab 25 mg [Concomitant]
     Indication: Product used for unknown indication
  8. Diphenhydram  Tab 25 mg [Concomitant]
     Indication: Product used for unknown indication
  9. Famotidine tab 20 mg [Concomitant]
     Indication: Product used for unknown indication
  10. Ondansetron tab 8 mg [Concomitant]
     Indication: Product used for unknown indication
  11. prednisone tab 20 mg [Concomitant]
     Indication: Product used for unknown indication
  12. prochlorperazine tab 10 mg [Concomitant]
     Indication: Product used for unknown indication
  13. Vitamin d3 cap 4000 unit. [Concomitant]
     Indication: Product used for unknown indication
  14. HYDROXYZ HCL TAB 50MG [Concomitant]
     Indication: Product used for unknown indication
  15. HYDROCORT TAB 10MG/20MG [Concomitant]
     Indication: Product used for unknown indication

REACTIONS (4)
  - Seizure [Recovered/Resolved]
  - Nausea [Recovered/Resolved]
  - Fatigue [Recovered/Resolved]
  - Adverse event [Unknown]

NARRATIVE: CASE EVENT DATE: 20230101
